FAERS Safety Report 7775915-7 (Version None)
Quarter: 2011Q3

REPORT INFORMATION
  Report Type: 
  Country: None (occurrence: None)
  Receive Date: 20110923
  Receipt Date: 20110808
  Transmission Date: 20111222
  Serious: Yes (Death, Hospitalization, Other)
  Sender: FDA-Public Use
  Company Number: US-ELI_LILLY_AND_COMPANY-US201109006053

PATIENT
  Sex: Female

DRUGS (4)
  1. FORTEO [Suspect]
     Indication: BONE DISORDER
     Dosage: 20 UG, QD
     Route: 058
     Dates: start: 20110112
  2. PREDNISONE [Concomitant]
     Dosage: 5 MG, QD
  3. SYNTHROID [Concomitant]
     Dosage: 88 UG, QD
  4. METHOTREXATE SODIUM [Concomitant]
     Dosage: 15 MG, WEEKLY (1/W)

REACTIONS (6)
  - GALLBLADDER OPERATION [None]
  - BRONCHITIS [None]
  - DEATH [None]
  - PNEUMONIA [None]
  - INTESTINAL OBSTRUCTION [None]
  - MALAISE [None]
